FAERS Safety Report 23112247 (Version 2)
Quarter: 2023Q4

REPORT INFORMATION
  Report Type: Report from Study
  Country: US (occurrence: US)
  Receive Date: 20231026
  Receipt Date: 20231110
  Transmission Date: 20240109
  Serious: Yes (Other)
  Sender: FDA-Public Use
  Company Number: US-ABBVIE-5385150

PATIENT
  Sex: Female
  Weight: 64 kg

DRUGS (15)
  1. HUMIRA [Suspect]
     Active Substance: ADALIMUMAB
     Indication: Ankylosing spondylitis
     Route: 058
     Dates: start: 20210108, end: 20210611
  2. HUMIRA [Suspect]
     Active Substance: ADALIMUMAB
     Route: 058
     Dates: start: 20220504
  3. HUMIRA [Suspect]
     Active Substance: ADALIMUMAB
     Route: 058
     Dates: start: 20210724
  4. HUMIRA [Suspect]
     Active Substance: ADALIMUMAB
     Route: 058
     Dates: start: 20230901
  5. VITAMIN K [Concomitant]
     Active Substance: PHYTONADIONE
     Indication: Product used for unknown indication
     Dosage: DOSAGE: 180 MCG EVERY EVENING??FIRST ADMIN DATE- 17 NOV 2018
     Route: 048
  6. ALPHA LIPOIC ACID [Concomitant]
     Active Substance: .ALPHA.-LIPOIC ACID
     Indication: Product used for unknown indication
     Dates: start: 20230330
  7. EZETIMIBE [Concomitant]
     Active Substance: EZETIMIBE
     Indication: Product used for unknown indication
     Dates: start: 20210713
  8. CETIRIZINE [Concomitant]
     Active Substance: CETIRIZINE HYDROCHLORIDE
     Indication: Rhinitis
     Route: 048
  9. ACETAMINOPHEN [Concomitant]
     Active Substance: ACETAMINOPHEN
     Indication: Pain management
     Dosage: 1 GEL CAPS Q 4-12 HOURS PM
     Dates: start: 20210628
  10. BIOASTIN [Concomitant]
     Indication: Product used for unknown indication
  11. MODERNA COVID-19 VACCINE [Suspect]
     Active Substance: ELASOMERAN
     Indication: COVID-19 immunisation
     Dosage: 1 IN ONCE
     Route: 030
     Dates: start: 202210, end: 202210
  12. LOVASTATIN [Concomitant]
     Active Substance: LOVASTATIN
     Indication: Product used for unknown indication
     Route: 048
  13. SIMVASTATIN [Concomitant]
     Active Substance: SIMVASTATIN
     Indication: Product used for unknown indication
     Route: 048
  14. PFIZER-BIONTECH COVID-19 VACCINE [Suspect]
     Active Substance: TOZINAMERAN
     Indication: COVID-19 immunisation
     Dosage: FIRST AND LAST ADMIN DATE: 2021?1 IN ONCE
     Route: 030
  15. PFIZER-BIONTECH COVID-19 VACCINE [Suspect]
     Active Substance: TOZINAMERAN
     Indication: COVID-19 immunisation
     Dosage: 1 IN ONCE
     Route: 030
     Dates: start: 2022, end: 2022

REACTIONS (67)
  - Hip arthroplasty [Recovered/Resolved]
  - Gait disturbance [Unknown]
  - Tooth extraction [Unknown]
  - Frustration tolerance decreased [Unknown]
  - Musculoskeletal pain [Unknown]
  - Asthenia [Unknown]
  - Musculoskeletal stiffness [Recovering/Resolving]
  - Ankylosing spondylitis [Unknown]
  - Venous thrombosis limb [Unknown]
  - Arthritis [Unknown]
  - Intervertebral disc degeneration [Unknown]
  - Osteopenia [Unknown]
  - Crohn^s disease [Unknown]
  - Joint lock [Unknown]
  - Deep vein thrombosis [Unknown]
  - Allergy to vaccine [Recovered/Resolved]
  - Allergy to vaccine [Recovered/Resolved]
  - Hypoaesthesia [Recovered/Resolved]
  - Dyspnoea [Recovered/Resolved]
  - Hepatic steatosis [Unknown]
  - Neoplasm skin [Unknown]
  - Peripheral venous disease [Unknown]
  - Palpitations [Recovered/Resolved]
  - Allergy to vaccine [Recovered/Resolved]
  - Hypoaesthesia [Recovered/Resolved]
  - Paraesthesia [Recovered/Resolved]
  - Allergy to vaccine [Recovered/Resolved]
  - Pain in extremity [Recovered/Resolved]
  - Complication associated with device [Unknown]
  - Weight decreased [Recovered/Resolved]
  - Osteoarthritis [Unknown]
  - Osteoarthritis [Unknown]
  - Osteoarthritis [Unknown]
  - Osteoarthritis [Recovering/Resolving]
  - Endovenous ablation [Recovered/Resolved]
  - Endovenous ablation [Unknown]
  - Phlebectomy [Unknown]
  - Pain [Unknown]
  - Paraesthesia [Recovered/Resolved]
  - Hypoaesthesia [Recovered/Resolved]
  - Palpitations [Recovered/Resolved]
  - Sneezing [Unknown]
  - Greater trochanteric pain syndrome [Unknown]
  - Burning sensation [Unknown]
  - Joint noise [Unknown]
  - Feeling hot [Unknown]
  - Paraesthesia [Recovered/Resolved]
  - Paraesthesia [Recovered/Resolved]
  - Unevaluable event [Recovered/Resolved]
  - Dyspnoea [Recovered/Resolved]
  - Tendonitis [Unknown]
  - Trigger finger [Unknown]
  - Supraventricular extrasystoles [Recovered/Resolved]
  - Dizziness [Recovered/Resolved]
  - Dizziness [Unknown]
  - Fall [Recovered/Resolved]
  - Fall [Recovered/Resolved]
  - Fall [Unknown]
  - Endovenous ablation [Unknown]
  - Supraventricular tachycardia [Recovered/Resolved]
  - Extrasystoles [Recovering/Resolving]
  - Ventricular extrasystoles [Recovered/Resolved]
  - Electrocardiogram QRS complex abnormal [Unknown]
  - Electrocardiogram T wave abnormal [Unknown]
  - Myalgia [Recovered/Resolved]
  - Musculoskeletal disorder [Recovering/Resolving]
  - Therapeutic response shortened [Unknown]

NARRATIVE: CASE EVENT DATE: 20210101
